FAERS Safety Report 12960292 (Version 2)
Quarter: 2016Q4

REPORT INFORMATION
  Report Type: Spontaneous
  Country: US (occurrence: US)
  Receive Date: 20161121
  Receipt Date: 20161221
  Transmission Date: 20170207
  Serious: Yes (Hospitalization, Other)
  Sender: FDA-Public Use
  Company Number: US-SAOL THERAPEUTICS-2016SAO01074

PATIENT
  Age: 69 Year
  Sex: Female

DRUGS (2)
  1. BACLOFEN. [Suspect]
     Active Substance: BACLOFEN
     Indication: MULTIPLE SCLEROSIS
  2. BACLOFEN. [Suspect]
     Active Substance: BACLOFEN
     Indication: MUSCLE SPASTICITY
     Dosage: 67.32 ?G, \DAY
     Route: 037
     Dates: start: 20090630

REACTIONS (2)
  - Seizure [Recovering/Resolving]
  - Device failure [Recovered/Resolved]

NARRATIVE: CASE EVENT DATE: 20161110
